FAERS Safety Report 10202769 (Version 2)
Quarter: 2015Q1

REPORT INFORMATION
  Report Type: Spontaneous
  Country: ES (occurrence: ES)
  Receive Date: 20140528
  Receipt Date: 20140529
  Transmission Date: 20150720
  Serious: Yes (Hospitalization)
  Sender: FDA-Public Use
  Company Number: ES-WATSON-2014-11357

PATIENT
  Age: 32 Year
  Sex: Male

DRUGS (7)
  1. IBUPROFEN (UNKNOWN) [Suspect]
     Active Substance: IBUPROFEN
     Indication: POSTOPERATIVE CARE
     Dosage: UNKNOWN
     Route: 065
  2. METOCLOPRAMIDE (UNKNOWN) [Suspect]
     Active Substance: METOCLOPRAMIDE
     Indication: POSTOPERATIVE CARE
     Dosage: UNKNOWN
     Route: 065
  3. OXAZEPAM (UNKNOWN) [Suspect]
     Active Substance: OXAZEPAM
     Indication: POSTOPERATIVE CARE
     Dosage: UNKNOWN
     Route: 065
  4. ACETAMINOPHEN. [Concomitant]
     Active Substance: ACETAMINOPHEN
     Indication: POSTOPERATIVE CARE
     Dosage: UNKNOWN
     Route: 065
  5. PLANTAGO OVATA [Suspect]
     Active Substance: PLANTAGO OVATA LEAF
     Indication: POSTOPERATIVE CARE
     Dosage: UNKNOWN
     Route: 065
  6. METAMIZOLE SODIUM (UNKNOWN) [Suspect]
     Active Substance: METAMIZOLE SODIUM
     Indication: POSTOPERATIVE CARE
     Dosage: UNK
     Route: 048
  7. DIMETHICONE. [Suspect]
     Active Substance: DIMETHICONE
     Indication: POSTOPERATIVE CARE
     Dosage: UNKNOWN
     Route: 065

REACTIONS (1)
  - Drug reaction with eosinophilia and systemic symptoms [Recovered/Resolved]
